FAERS Safety Report 6721514-5 (Version None)
Quarter: 2010Q2

REPORT INFORMATION
  Report Type: 
  Country: None (occurrence: None)
  Receive Date: 20100427
  Receipt Date: 20100316
  Transmission Date: 20101027
  Serious: Yes (Life-Threatening)
  Sender: FDA-Public Use
  Company Number: 96883

PATIENT
  Age: 35 Year
  Sex: Female
  Weight: 80 kg

DRUGS (1)
  1. KETAMINE HCL [Suspect]
     Indication: MAMMOPLASTY
     Dosage: 100MG/IV
     Route: 042
     Dates: start: 20100315

REACTIONS (2)
  - ARRHYTHMIA [None]
  - HYPERTENSION [None]
